FAERS Safety Report 15231176 (Version 2)
Quarter: 2018Q3

REPORT INFORMATION
  Report Type: Spontaneous
  Country: US (occurrence: US)
  Receive Date: 20180802
  Receipt Date: 20180821
  Transmission Date: 20181010
  Serious: Yes (Hospitalization, Other)
  Sender: FDA-Public Use
  Company Number: US-BAUSCH-BL-2018-020579

PATIENT
  Sex: Female

DRUGS (3)
  1. EPIRUBICIN [Suspect]
     Active Substance: EPIRUBICIN
     Indication: INVASIVE DUCTAL BREAST CARCINOMA
     Dosage: ONLY COMPLETED FIVE CYCLES OF 5?FLUOROURACIL, EPIRUBICIN AND CYCLOPHOSPHAMIDE ALONG WITH RADIATION
     Route: 065
  2. CYCLOPHOSPHAMIDE. [Suspect]
     Active Substance: CYCLOPHOSPHAMIDE
     Indication: INVASIVE DUCTAL BREAST CARCINOMA
     Dosage: ONLY COMPLETED FIVE CYCLES OF 5?FLUOROURACIL, EPIRUBICIN AND CYCLOPHOSPHAMIDE ALONG WITH RADIATION
     Route: 065
  3. FLUOROURACIL. [Suspect]
     Active Substance: FLUOROURACIL
     Indication: INVASIVE DUCTAL BREAST CARCINOMA
     Dosage: ONLY COMPLETED FIVE CYCLES OF 5?FLUOROURACIL, EPIRUBICIN AND CYCLOPHOSPHAMIDE ALONG WITH RADIATION
     Route: 065

REACTIONS (2)
  - Toxicity to various agents [Unknown]
  - Febrile neutropenia [Unknown]
